FAERS Safety Report 23445744 (Version 1)
Quarter: 2024Q1

REPORT INFORMATION
  Report Type: Spontaneous
  Country: US (occurrence: US)
  Receive Date: 20240126
  Receipt Date: 20240126
  Transmission Date: 20240410
  Serious: No
  Sender: FDA-Public Use
  Company Number: US-GSK-US2024AMR008269

PATIENT
  Sex: Male

DRUGS (1)
  1. FLUTICASONE PROPIONATE [Suspect]
     Active Substance: FLUTICASONE PROPIONATE
     Indication: Product used for unknown indication
     Dosage: 2 PUFF(S), BID, 12G/120 METERED

REACTIONS (6)
  - Vertigo [Unknown]
  - Productive cough [Unknown]
  - Multiple allergies [Unknown]
  - Oral discomfort [Unknown]
  - Oropharyngeal discomfort [Unknown]
  - Device use issue [Unknown]
